FAERS Safety Report 23932350 (Version 1)
Quarter: 2024Q2

REPORT INFORMATION
  Report Type: Spontaneous
  Country: GB (occurrence: GB)
  Receive Date: 20240603
  Receipt Date: 20240603
  Transmission Date: 20240715
  Serious: Yes (Other)
  Sender: FDA-Public Use
  Company Number: GB-MHRA-TPP9287647C710249YC1716907364072

PATIENT
  Age: 45 Year
  Sex: Female
  Weight: 59 kg

DRUGS (26)
  1. DOXYCYCLINE [Suspect]
     Active Substance: DOXYCYCLINE\DOXYCYCLINE HYCLATE
     Dosage: UNK
     Route: 048
     Dates: start: 20230102
  2. METOCLOPRAMIDE [Concomitant]
     Active Substance: METOCLOPRAMIDE
     Indication: Nausea
     Dosage: 1 TABLET, 3X/DAY (FREQ:8 H; TAKE ONE WHEN REQUIRED FOR NAUSEA AND VOMITING, MAX 5 DAYS
     Dates: start: 20240502, end: 20240507
  3. METOCLOPRAMIDE [Concomitant]
     Active Substance: METOCLOPRAMIDE
     Indication: Vomiting
  4. SUMATRIPTAN [Concomitant]
     Active Substance: SUMATRIPTAN
     Indication: Headache
     Dosage: TAKE ONE TABLET AT ONSET OF HEADACHE, IF HEADACHE GETS BETTER BUT THEN RECURS TAKE A 2ND TABLET AFTE
  5. AMITRIPTYLINE HYDROCHLORIDE [Concomitant]
     Active Substance: AMITRIPTYLINE HYDROCHLORIDE
     Dosage: TAKE ONE AT NIGHT CAN INCREASE TO TWO AT NIGHT AFTER 3 DAYS
     Dates: start: 20240520
  6. DIAZEPAM [Concomitant]
     Active Substance: DIAZEPAM
     Dosage: ONE OR TWO TABLET AS REQUIRED, MAXIMUM THREE TIMES A DAY
  7. ZOLPIDEM [Concomitant]
     Active Substance: ZOLPIDEM TARTRATE
     Dosage: AT NIGHT
     Dates: start: 20240520
  8. CHOLECALCIFEROL [Concomitant]
     Active Substance: CHOLECALCIFEROL
     Dosage: 1 DF, WEEKLY
     Dates: start: 20240312, end: 20240423
  9. CYCLIZINE [Concomitant]
     Active Substance: CYCLIZINE
     Dosage: FREQ:8 H;TAKE ONE UP TO  THREE TIMES A DAY ORALLY WHEN R...
     Route: 048
     Dates: start: 20240318, end: 20240415
  10. ATENOLOL [Concomitant]
     Active Substance: ATENOLOL
     Indication: Anxiety
     Dosage: 1 DF, 1X/DAY
     Dates: start: 20240520
  11. ATENOLOL [Concomitant]
     Active Substance: ATENOLOL
     Indication: Palpitations
  12. COCODAMOL [Concomitant]
     Active Substance: ACETAMINOPHEN\CODEINE PHOSPHATE
     Dosage: TAKE 1 OR 2 4 TIMES/DAY; NOT MORE THAN 8 IN 24 ...
     Dates: start: 20180927
  13. MORPHINE SULFATE [Concomitant]
     Active Substance: MORPHINE SULFATE
     Dosage: 2.5-5ML EVERY 4-6 HOURS IF NEEDED
     Dates: start: 20230714
  14. ATORVASTATIN [Concomitant]
     Active Substance: ATORVASTATIN
     Indication: Blood cholesterol abnormal
     Dosage: 1 TABLET, 1X/DAY
     Dates: start: 20240524
  15. BECLOMETHASONE DIPROPIONATE [Concomitant]
     Active Substance: BECLOMETHASONE DIPROPIONATE
     Dosage: FREQ:12 H;INHALE 2 DOSES TWICE DAILY
     Route: 055
     Dates: start: 20190114
  16. ALBUTEROL [Concomitant]
     Active Substance: ALBUTEROL
     Dosage: FREQ:{ASNECESSARY};INHALE
     Route: 055
     Dates: start: 20190114
  17. VORTIOXETINE [Concomitant]
     Active Substance: VORTIOXETINE
     Dosage: AT NIGHT
     Dates: start: 20230601, end: 20240524
  18. TAMOXIFEN [Concomitant]
     Active Substance: TAMOXIFEN
     Dosage: 1 DF, 1X/DAY
     Dates: start: 20230613
  19. QUETIAPINE [Concomitant]
     Active Substance: QUETIAPINE
     Dosage: TAKE 2 IN THE MORNING (50MG) AND 3 AT NIGHT (75...
     Dates: start: 20231031, end: 20240524
  20. GOSERELIN [Concomitant]
     Active Substance: GOSERELIN
     Dosage: INSERT ONE IMPLANT SC LOWER ANTERIOR ABDOMEN E...
     Dates: start: 20240307
  21. EXEMESTANE [Concomitant]
     Active Substance: EXEMESTANE
     Dosage: 1 DF, 1X/DAY
     Dates: start: 20240307
  22. CALCIUM\CHOLECALCIFEROL [Concomitant]
     Active Substance: CALCIUM\CHOLECALCIFEROL
     Dosage: FREQ:12 H;TAKE ONE TWICE DAILY
     Dates: start: 20240312
  23. MIRTAZAPINE [Concomitant]
     Active Substance: MIRTAZAPINE
     Dosage: AT NIGHT
     Dates: start: 20240402, end: 20240524
  24. VENLAFAXINE [Concomitant]
     Active Substance: VENLAFAXINE HYDROCHLORIDE
     Dosage: FREQ:12 H;TAKE ONE TWICE A DAY
     Dates: start: 20240402, end: 20240524
  25. ZOPICLONE [Concomitant]
     Active Substance: ZOPICLONE
     Dosage: AT NIGHT WHEN REQUIRED
     Dates: start: 20240402
  26. TRAZODONE [Concomitant]
     Active Substance: TRAZODONE HYDROCHLORIDE
     Dosage: AT NIGHT
     Dates: start: 20240524

REACTIONS (2)
  - Inflammation [Recovered/Resolved]
  - Pain [Recovered/Resolved]

NARRATIVE: CASE EVENT DATE: 20230102
